FAERS Safety Report 8356362-6 (Version None)
Quarter: 2012Q2

REPORT INFORMATION
  Report Type: 
  Country: None (occurrence: None)
  Receive Date: 20120510
  Receipt Date: 20120427
  Transmission Date: 20120825
  Serious: Yes (Other)
  Sender: FDA-Public Use
  Company Number: 2012NA000043

PATIENT
  Age: 21 Year
  Sex: Female

DRUGS (9)
  1. ROCURONIUM BROMIDE [Suspect]
     Indication: ANAESTHESIA PROCEDURE
  2. PROPOFOL [Suspect]
     Indication: ANAESTHESIA PROCEDURE
  3. NITROUS OXIDE (NITROUS OXIDE) [Suspect]
     Indication: ANAESTHESIA PROCEDURE
  4. GLYCOPYRROLATE [Suspect]
     Indication: ANAESTHESIA PROCEDURE
  5. FENTANYL [Suspect]
     Indication: ANAESTHESIA PROCEDURE
  6. DICLOFENAC SODIUM [Suspect]
     Indication: ANAESTHESIA PROCEDURE
  7. MIDAZOLAM HCL [Suspect]
     Indication: ANAESTHESIA PROCEDURE
  8. RANITIDINE HYDROCHLORIDE [Suspect]
     Indication: ANAESTHESIA PROCEDURE
  9. NEOSTIGMINE (NEOSTIGMINE) [Suspect]
     Indication: ANAESTHESIA PROCEDURE

REACTIONS (1)
  - ATRIOVENTRICULAR DISSOCIATION [None]
